FAERS Safety Report 22345038 (Version 1)
Quarter: 2023Q2

REPORT INFORMATION
  Report Type: Spontaneous
  Country: US (occurrence: US)
  Receive Date: 20230519
  Receipt Date: 20230519
  Transmission Date: 20230722
  Serious: No
  Sender: FDA-Public Use
  Company Number: US-GLAXOSMITHKLINE-USCH2023HLN023167

PATIENT

DRUGS (5)
  1. FLUTICASONE [Suspect]
     Active Substance: FLUTICASONE
     Indication: Hypersensitivity
     Dosage: UNK
  2. FLUTICASONE [Suspect]
     Active Substance: FLUTICASONE
     Indication: Nasal congestion
  3. FLUTICASONE [Suspect]
     Active Substance: FLUTICASONE
     Indication: Sneezing
  4. FLUTICASONE [Suspect]
     Active Substance: FLUTICASONE
     Indication: Lacrimation increased
  5. FLUTICASONE [Suspect]
     Active Substance: FLUTICASONE
     Indication: Eye pruritus

REACTIONS (1)
  - Drug ineffective [Unknown]
